FAERS Safety Report 7639322-X (Version None)
Quarter: 2011Q3

REPORT INFORMATION
  Report Type: 
  Country: None (occurrence: None)
  Receive Date: 20110727
  Receipt Date: 20110622
  Transmission Date: 20111222
  Serious: Yes (Hospitalization, Other)
  Sender: FDA-Public Use
  Company Number: PHHY2011IT66496

PATIENT
  Sex: Male

DRUGS (1)
  1. BENAZEPRIL HYDROCHLORIDE [Suspect]
     Dosage: UNK

REACTIONS (5)
  - SYNCOPE [None]
  - HYPONATRAEMIA [None]
  - HEAD INJURY [None]
  - CONFUSIONAL STATE [None]
  - FALL [None]
